FAERS Safety Report 12608985 (Version 2)
Quarter: 2016Q3

REPORT INFORMATION
  Report Type: Report from Study
  Country: US (occurrence: US)
  Receive Date: 20160731
  Receipt Date: 20160810
  Transmission Date: 20161109
  Serious: Yes (Hospitalization)
  Sender: FDA-Public Use
  Company Number: US-ABBVIE-16K-163-1688290-00

PATIENT
  Age: 60 Year
  Sex: Female
  Weight: 59.47 kg

DRUGS (1)
  1. HUMIRA [Suspect]
     Active Substance: ADALIMUMAB
     Indication: RHEUMATOID ARTHRITIS
     Route: 058
     Dates: start: 20160719

REACTIONS (3)
  - Chills [Unknown]
  - Headache [Unknown]
  - Kidney infection [Unknown]

NARRATIVE: CASE EVENT DATE: 20160726
